FAERS Safety Report 4675732-0 (Version None)
Quarter: 2005Q2

REPORT INFORMATION
  Report Type: 
  Country: None (occurrence: None)
  Receive Date: 20050527
  Receipt Date: 20050302
  Transmission Date: 20051028
  Serious: No
  Sender: FDA-Public Use
  Company Number: US-BRISTOL-MYERS SQUIBB COMPANY-12885158

PATIENT
  Age: 74 Year
  Sex: Female

DRUGS (6)
  1. ERBITUX [Suspect]
     Indication: COLON CANCER METASTATIC
     Dosage: 400 MG FROM18-OCT-2004TO 21-FEB-2005 WEEKLY/400 MG FROM 07-MAR-2005 TO 21-MAR-2005 EVERY OTHER WEEK.
     Route: 042
     Dates: start: 20050221, end: 20050221
  2. ARANESP [Concomitant]
  3. BENADRYL [Concomitant]
  4. DECADRON [Concomitant]
  5. IRINOTECAN [Concomitant]
     Dates: start: 20050207, end: 20050207
  6. KYTRIL [Concomitant]

REACTIONS (5)
  - ACNE [None]
  - ERYTHEMA [None]
  - EYE PRURITUS [None]
  - EYE SWELLING [None]
  - SWELLING FACE [None]
